FAERS Safety Report 24123551 (Version 1)
Quarter: 2024Q3

REPORT INFORMATION
  Report Type: Spontaneous
  Country: US (occurrence: US)
  Receive Date: 20240723
  Receipt Date: 20240723
  Transmission Date: 20241016
  Serious: No
  Sender: OTSUKA
  Company Number: US-OTSUKA-2024_002983

PATIENT
  Sex: Female

DRUGS (5)
  1. REXULTI [Suspect]
     Active Substance: BREXPIPRAZOLE
     Indication: Product used for unknown indication
     Dosage: 0.5 MG
     Route: 065
  2. QUETIAPINE [Concomitant]
     Active Substance: QUETIAPINE
     Indication: Agitation
     Dosage: UNK, BID
     Route: 065
  3. QUETIAPINE [Concomitant]
     Active Substance: QUETIAPINE
     Indication: Dementia
  4. LORAZEPAM [Concomitant]
     Active Substance: LORAZEPAM
     Indication: Agitation
     Dosage: UNK
     Route: 065
  5. LORAZEPAM [Concomitant]
     Active Substance: LORAZEPAM
     Indication: Dementia

REACTIONS (2)
  - Abdominal discomfort [Unknown]
  - Dizziness [Unknown]
